FAERS Safety Report 24830158 (Version 1)
Quarter: 2025Q1

REPORT INFORMATION
  Report Type: Spontaneous
  Country: US (occurrence: None)
  Receive Date: 20250110
  Receipt Date: 20250110
  Transmission Date: 20250409
  Serious: Yes (Hospitalization)
  Sender: FDA-CTU
  Company Number: None

PATIENT
  Age: 46 Year
  Sex: Female
  Weight: 72.6 kg

DRUGS (2)
  1. IPILIMUMAB [Suspect]
     Active Substance: IPILIMUMAB
     Dates: end: 20241127
  2. NIVOLUMAB [Suspect]
     Active Substance: NIVOLUMAB
     Dates: end: 20241127

REACTIONS (1)
  - Enterocolitis [None]

NARRATIVE: CASE EVENT DATE: 20241202
